FAERS Safety Report 5363191-4 (Version None)
Quarter: 2007Q2

REPORT INFORMATION
  Report Type: 
  Country: None (occurrence: None)
  Receive Date: 20070620
  Receipt Date: 20070613
  Transmission Date: 20071010
  Serious: Yes (Hospitalization, Other)
  Sender: FDA-Public Use
  Company Number: PHBS2007BR09871

PATIENT
  Age: 64 Year
  Sex: Female
  Weight: 46 kg

DRUGS (14)
  1. CYCLOSPORINE [Suspect]
     Indication: LIVER TRANSPLANT
  2. AMLODIPINE [Concomitant]
     Dosage: 5 MG/D
     Route: 048
  3. MONOCORDIL [Concomitant]
     Dosage: 10 MG/D
     Route: 048
  4. HYDROXYZINE HYDROCHLORIDE [Concomitant]
  5. FUROSEMIDE [Concomitant]
     Dosage: 40 MG/D
  6. ATENOLOL [Concomitant]
     Dosage: 100 MG, QD
     Route: 048
  7. OMEPRAZOLE [Concomitant]
     Dosage: 20 MG, Q12H
     Route: 048
  8. TACROLIMUS [Suspect]
     Indication: LIVER TRANSPLANT
     Dosage: 5 MG, Q12H
     Route: 048
     Dates: end: 20070101
  9. BACTRIM [Concomitant]
     Route: 048
     Dates: end: 20060101
  10. URSACOL [Concomitant]
     Dosage: 150 MG/D
  11. URSACOL [Concomitant]
     Dosage: 450 MG/D
     Route: 048
  12. SORCAL [Concomitant]
     Dosage: 1 DF, QD
     Route: 048
  13. PREDNISONE TAB [Concomitant]
     Dosage: 5 MG, BID
     Route: 048
  14. MYFORTIC [Suspect]
     Indication: LIVER TRANSPLANT
     Dosage: 720 MG, BID
     Route: 048
     Dates: end: 20070201

REACTIONS (17)
  - BILIARY CIRRHOSIS PRIMARY [None]
  - BILIARY TRACT OPERATION [None]
  - BLOOD PRESSURE INCREASED [None]
  - DISEASE RECURRENCE [None]
  - GASTROINTESTINAL INFECTION [None]
  - HEPATIC ARTERY OCCLUSION [None]
  - HERPES VIRUS INFECTION [None]
  - IMMUNODEFICIENCY [None]
  - OEDEMA [None]
  - PNEUMONIA [None]
  - PRURITUS GENERALISED [None]
  - RED BLOOD CELL ABNORMALITY [None]
  - RENAL IMPAIRMENT [None]
  - SURGERY [None]
  - URINARY TRACT DISORDER [None]
  - VIRAL INFECTION [None]
  - WHITE BLOOD CELL DISORDER [None]
